FAERS Safety Report 10250543 (Version 1)
Quarter: 2014Q2

REPORT INFORMATION
  Report Type: Spontaneous
  Country: NL (occurrence: NL)
  Receive Date: 20140620
  Receipt Date: 20140620
  Transmission Date: 20141212
  Serious: Yes (Death)
  Sender: FDA-Public Use
  Company Number: NL-BAXTER-2014BAX030999

PATIENT
  Sex: 0

DRUGS (3)
  1. NATRIUMCHLORIDE 0,9% M/V, INFUSIEVLOEISTOF [Suspect]
     Indication: HAEMORRHAGE
     Dosage: 1 BAG
     Route: 065
  2. MIDAZOLAM [Suspect]
     Indication: AGITATION
     Route: 030
  3. NALOXONE [Suspect]
     Indication: DRUG ABUSER
     Route: 065

REACTIONS (1)
  - Death [Fatal]
